FAERS Safety Report 18156183 (Version 1)
Quarter: 2020Q3

REPORT INFORMATION
  Report Type: Spontaneous
  Country: US (occurrence: US)
  Receive Date: 20200815
  Receipt Date: 20200815
  Transmission Date: 20201103
  Serious: Yes (Disabling, Other)
  Sender: FDA-Public Use
  Company Number: None

PATIENT
  Age: 53 Year
  Sex: Female
  Weight: 76.5 kg

DRUGS (4)
  1. LYRICA [Concomitant]
     Active Substance: PREGABALIN
  2. NATURES VALLEY MULTIVITAMIN [Concomitant]
  3. LOSINOPRIL?HZTZ [Concomitant]
  4. ASSURED INSTANT HAND SANITIZER CLEAR [Suspect]
     Active Substance: ALCOHOL
     Indication: COVID-19 PROPHYLAXIS
     Dosage: ?          OTHER FREQUENCY:15 C PER DAY;?
     Route: 058

REACTIONS (3)
  - Neuropathy peripheral [None]
  - Suspected product quality issue [None]
  - Nerve injury [None]

NARRATIVE: CASE EVENT DATE: 20200703
